FAERS Safety Report 6370456-6 (Version None)
Quarter: 2009Q3

REPORT INFORMATION
  Report Type: 
  Country: None (occurrence: None)
  Receive Date: 20090923
  Receipt Date: 20090918
  Transmission Date: 20100115
  Serious: Yes (Other)
  Sender: FDA-Public Use
  Company Number: A0808514A

PATIENT
  Sex: Female
  Weight: 67 kg

DRUGS (3)
  1. NIQUITIN 21MG [Suspect]
     Indication: SMOKING CESSATION THERAPY
     Dosage: 21MG PER DAY
     Route: 062
     Dates: start: 20090823
  2. ZIPRASIDONE HCL [Concomitant]
     Dosage: 80MG TWICE PER DAY
     Route: 048
  3. FLUOXETINE [Concomitant]
     Dosage: 20MG PER DAY
     Route: 048

REACTIONS (2)
  - HYPOTENSION [None]
  - SYNCOPE [None]
